FAERS Safety Report 9160749 (Version 2)
Quarter: 2013Q1

REPORT INFORMATION
  Report Type: Spontaneous
  Country: IR (occurrence: IR)
  Receive Date: 20130313
  Receipt Date: 20130315
  Transmission Date: 20140127
  Serious: Yes (Death)
  Sender: FDA-Public Use
  Company Number: IR-PFIZER INC-2013085116

PATIENT
  Age: 26 Year
  Sex: Male

DRUGS (5)
  1. VANCOMYCIN [Suspect]
     Indication: STAPHYLOCOCCAL INFECTION
  2. HYDROCORTISONE [Concomitant]
  3. CIPROFLOXACIN [Concomitant]
  4. METRONIDAZOLE [Concomitant]
  5. KETOCONAZOLE [Concomitant]

REACTIONS (1)
  - Pathogen resistance [Fatal]
